FAERS Safety Report 21906812 (Version 2)
Quarter: 2023Q1

REPORT INFORMATION
  Report Type: Report from Study
  Country: GB (occurrence: GB)
  Receive Date: 20230125
  Receipt Date: 20230213
  Transmission Date: 20230418
  Serious: Yes (Other)
  Sender: FDA-Public Use
  Company Number: GB-ABBVIE-4280980

PATIENT
  Age: 58 Year
  Sex: Male

DRUGS (5)
  1. UPADACITINIB [Suspect]
     Active Substance: UPADACITINIB
     Indication: Rheumatoid arthritis
     Route: 048
     Dates: start: 20220930, end: 20230112
  2. ANORO ELLIPTA [Concomitant]
     Active Substance: UMECLIDINIUM BROMIDE\VILANTEROL TRIFENATATE
     Indication: Emphysema
     Dosage: TIME INTERVAL: 0.33333333 DAYS
     Route: 055
     Dates: start: 20220930
  3. CO-DYDRAMOL [Concomitant]
     Active Substance: ACETAMINOPHEN\DIHYDROCODEINE
     Indication: Rheumatoid arthritis
     Route: 048
     Dates: start: 20220930
  4. SULFASALAZINE [Concomitant]
     Active Substance: SULFASALAZINE
     Indication: Rheumatoid arthritis
     Route: 048
     Dates: start: 20220930
  5. ARTHROTEC [Concomitant]
     Active Substance: DICLOFENAC SODIUM\MISOPROSTOL
     Indication: Rheumatoid arthritis
     Route: 048
     Dates: start: 20220930

REACTIONS (1)
  - Lower respiratory tract infection viral [Recovered/Resolved]

NARRATIVE: CASE EVENT DATE: 20230112
